FAERS Safety Report 15798893 (Version 1)
Quarter: 2019Q1

REPORT INFORMATION
  Report Type: Spontaneous
  Country: US (occurrence: US)
  Receive Date: 20190108
  Receipt Date: 20190108
  Transmission Date: 20190417
  Serious: Yes (Hospitalization, Other)
  Sender: FDA-Public Use
  Company Number: US-JNJFOC-20190107010

PATIENT
  Age: 58 Year
  Sex: Male

DRUGS (2)
  1. INVOKANA [Suspect]
     Active Substance: CANAGLIFLOZIN
     Indication: TYPE 2 DIABETES MELLITUS
     Route: 048
     Dates: start: 20171114, end: 20180814
  2. INVOKANA [Suspect]
     Active Substance: CANAGLIFLOZIN
     Indication: TYPE 2 DIABETES MELLITUS
     Route: 048
     Dates: start: 20150325, end: 20150625

REACTIONS (6)
  - Cellulitis [Unknown]
  - Toe amputation [Unknown]
  - Osteomyelitis [Unknown]
  - Localised infection [Unknown]
  - Skin ulcer [Unknown]
  - Foot amputation [Unknown]

NARRATIVE: CASE EVENT DATE: 201504
